FAERS Safety Report 4591567-1 (Version None)
Quarter: 2005Q1

REPORT INFORMATION
  Report Type: 
  Country: None (occurrence: None)
  Receive Date: 20050222
  Receipt Date: 20050208
  Transmission Date: 20050727
  Serious: Yes (Death)
  Sender: FDA-Public Use
  Company Number: 2005026644

PATIENT
  Age: 43 Year
  Sex: Male
  Weight: 182 kg

DRUGS (3)
  1. VIAGRA [Suspect]
     Indication: ERECTILE DYSFUNCTION
     Dosage: 50 MG (50 MG, AS NECESSARY), ORAL
     Route: 048
     Dates: start: 20050205
  2. ROSUVASTATIN (ROSUVASTATIN) [Concomitant]
  3. METFORMIN HCL [Concomitant]

REACTIONS (1)
  - DEATH [None]
